FAERS Safety Report 25374030 (Version 1)
Quarter: 2025Q2

REPORT INFORMATION
  Report Type: Spontaneous
  Country: SA (occurrence: SA)
  Receive Date: 20250529
  Receipt Date: 20250529
  Transmission Date: 20250717
  Serious: Yes (Other)
  Sender: AMGEN
  Company Number: SA-AMGEN-SAUSP2025099864

PATIENT

DRUGS (2)
  1. ADALIMUMAB [Suspect]
     Active Substance: ADALIMUMAB
     Indication: Psoriasis
     Route: 065
  2. ETANERCEPT [Suspect]
     Active Substance: ETANERCEPT
     Indication: Psoriasis
     Route: 065

REACTIONS (10)
  - Acute generalised exanthematous pustulosis [Unknown]
  - Anaphylactic reaction [Unknown]
  - Hypertension [Unknown]
  - Rash [Unknown]
  - Nausea [Unknown]
  - Pruritus [Unknown]
  - Arthralgia [Unknown]
  - Vomiting [Unknown]
  - Dry skin [Unknown]
  - Depressed mood [Unknown]
